FAERS Safety Report 24668506 (Version 2)
Quarter: 2024Q4

REPORT INFORMATION
  Report Type: Spontaneous
  Country: US (occurrence: US)
  Receive Date: 20241127
  Receipt Date: 20241127
  Transmission Date: 20250115
  Serious: Yes (Hospitalization)
  Sender: ROCHE
  Company Number: US-ROCHE-10000135484

PATIENT
  Age: 28 Year

DRUGS (2)
  1. CELLCEPT [Suspect]
     Active Substance: MYCOPHENOLATE MOFETIL
     Indication: Product used for unknown indication
     Route: 065
     Dates: start: 202304
  2. METHYLPREDNISOLONE [Concomitant]
     Active Substance: METHYLPREDNISOLONE

REACTIONS (16)
  - Off label use [Unknown]
  - Protein urine present [Unknown]
  - Urine abnormality [Unknown]
  - Discomfort [Unknown]
  - Nail discolouration [Unknown]
  - Abdominal pain [Unknown]
  - General physical health deterioration [Unknown]
  - Glomerular filtration rate decreased [Unknown]
  - Blood creatinine increased [Unknown]
  - Swelling [Unknown]
  - Haemorrhage [Unknown]
  - Peripheral swelling [Unknown]
  - Hypertension [Unknown]
  - Haemoglobin decreased [Unknown]
  - Bipolar disorder [Unknown]
  - Dehydration [Unknown]
